FAERS Safety Report 12854783 (Version 1)
Quarter: 2016Q4

REPORT INFORMATION
  Report Type: Spontaneous
  Country: CH (occurrence: PT)
  Receive Date: 20161017
  Receipt Date: 20161017
  Transmission Date: 20170207
  Serious: Yes (Other)
  Sender: FDA-Public Use
  Company Number: CH-LPDUSPRD-20160903

PATIENT
  Age: 19 Year
  Sex: Female

DRUGS (1)
  1. FERINJECT [Suspect]
     Active Substance: FERRIC CARBOXYMALTOSE
     Dosage: 500 MG
     Route: 065
     Dates: start: 20160929

REACTIONS (3)
  - Dyspnoea [Unknown]
  - Pruritus generalised [Unknown]
  - Papule [Unknown]

NARRATIVE: CASE EVENT DATE: 20160929
